FAERS Safety Report 7602116-5 (Version None)
Quarter: 2011Q3

REPORT INFORMATION
  Report Type: 
  Country: None (occurrence: None)
  Receive Date: 20110711
  Receipt Date: 20110711
  Transmission Date: 20111222
  Serious: Yes (Other)
  Sender: FDA-Public Use
  Company Number: None

PATIENT
  Age: 18 Year
  Sex: Male
  Weight: 58.967 kg

DRUGS (1)
  1. CYMBALTA [Suspect]
     Indication: MAJOR DEPRESSION
     Dosage: 90MG
     Route: 048
     Dates: start: 20101112, end: 20110605

REACTIONS (6)
  - ANXIETY [None]
  - ANGER [None]
  - EMOTIONAL DISORDER [None]
  - SUICIDAL BEHAVIOUR [None]
  - FEELING ABNORMAL [None]
  - PANIC ATTACK [None]
